FAERS Safety Report 9257920 (Version 1)
Quarter: 2013Q1

REPORT INFORMATION
  Report Type: Spontaneous
  Country: US (occurrence: None)
  Receive Date: 20121212
  Receipt Date: 20121212
  Transmission Date: 20140127
  Serious: No
  Sender: FDA-Public Use
  Company Number: 1208USA000062

PATIENT
  Age: 60 Year
  Sex: Male
  Weight: 66.7 kg

DRUGS (3)
  1. VICTRELIS [Suspect]
     Indication: HEPATITIS C
     Route: 048
     Dates: start: 20120301, end: 20121010
  2. PEGINTRON [Suspect]
     Indication: HEPATITIS C
     Dates: start: 20120202, end: 20121004
  3. RIBASPHERE [Suspect]
     Indication: HEPATITIS C
     Route: 048
     Dates: start: 20120202

REACTIONS (6)
  - Anaemia [None]
  - Hypotension [None]
  - Dyspnoea [None]
  - Fatigue [None]
  - Haemoglobin decreased [None]
  - Dizziness [None]
